FAERS Safety Report 4804856-X (Version None)
Quarter: 2005Q4

REPORT INFORMATION
  Report Type: 
  Country: None (occurrence: None)
  Receive Date: 20051017
  Receipt Date: 20050930
  Transmission Date: 20060501
  Serious: Yes (Death, Other)
  Sender: FDA-Public Use
  Company Number: 12603

PATIENT
  Age: 33 Year
  Sex: 0

DRUGS (3)
  1. DILTIAZEM [Suspect]
  2. CYCLOBENZAPRINE HCL [Suspect]
  3. SERTRALINE HCL [Suspect]

REACTIONS (3)
  - COMPLETED SUICIDE [None]
  - DRUG TOXICITY [None]
  - MULTIPLE DRUG OVERDOSE [None]
